FAERS Safety Report 5568612-X (Version None)
Quarter: 2007Q4

REPORT INFORMATION
  Report Type: 
  Country: None (occurrence: None)
  Receive Date: 20071220
  Receipt Date: 20071210
  Transmission Date: 20080405
  Serious: Yes (Other)
  Sender: FDA-Public Use
  Company Number: US-BAYER-200716484NA

PATIENT
  Age: 40 Year
  Sex: Female

DRUGS (2)
  1. YAZ [Suspect]
     Dates: start: 20071001, end: 20070101
  2. WELLBUTRIN [Concomitant]

REACTIONS (1)
  - DEPRESSION [None]
